FAERS Safety Report 6832537-X (Version None)
Quarter: 2010Q3

REPORT INFORMATION
  Report Type: 
  Country: None (occurrence: None)
  Receive Date: 20100712
  Receipt Date: 20070315
  Transmission Date: 20110219
  Serious: Yes (Hospitalization)
  Sender: FDA-Public Use
  Company Number: US-PFIZER INC-2007020383

PATIENT
  Sex: Male
  Weight: 107 kg

DRUGS (3)
  1. CHANTIX [Suspect]
     Indication: EX-TOBACCO USER
     Dosage: FREQUENCY: ONCE
     Dates: start: 20070313, end: 20070313
  2. LISINOPRIL [Interacting]
     Indication: HYPERTENSION
  3. VALTREX [Concomitant]

REACTIONS (4)
  - DIZZINESS [None]
  - DRUG INTERACTION [None]
  - LOSS OF CONSCIOUSNESS [None]
  - NAUSEA [None]
